FAERS Safety Report 10610949 (Version 2)
Quarter: 2014Q4

REPORT INFORMATION
  Report Type: Spontaneous
  Country: US (occurrence: US)
  Receive Date: 20141126
  Receipt Date: 20141202
  Transmission Date: 20150529
  Serious: No
  Sender: FDA-Public Use
  Company Number: US-GLAXOSMITHKLINE-A1077700A

PATIENT

DRUGS (4)
  1. LATANOPROST. [Concomitant]
     Active Substance: LATANOPROST
  2. DILTIAZEM [Concomitant]
     Active Substance: DILTIAZEM
  3. ASPIRIN. [Concomitant]
     Active Substance: ASPIRIN
  4. FLOVENT [Suspect]
     Active Substance: FLUTICASONE PROPIONATE
     Indication: ASTHMA
     Dosage: 1 PUFF(S), BID
     Route: 055
     Dates: start: 201402

REACTIONS (4)
  - Inhalation therapy [Unknown]
  - Dyspnoea [Recovering/Resolving]
  - Product quality issue [Unknown]
  - Drug ineffective [Unknown]

NARRATIVE: CASE EVENT DATE: 201405
